FAERS Safety Report 15782194 (Version 1)
Quarter: 2019Q1

REPORT INFORMATION
  Report Type: Spontaneous
  Country: US (occurrence: US)
  Receive Date: 20190102
  Receipt Date: 20190102
  Transmission Date: 20190417
  Serious: No
  Sender: FDA-Public Use
  Company Number: US-ASTRAZENECA-2018SE32225

PATIENT
  Sex: Male
  Weight: 97.1 kg

DRUGS (11)
  1. DIFLUCAN [Concomitant]
     Active Substance: FLUCONAZOLE
     Indication: GASTROOESOPHAGEAL REFLUX DISEASE
  2. THEOPHYLLINE [Concomitant]
     Active Substance: THEOPHYLLINE ANHYDROUS
     Indication: CHRONIC OBSTRUCTIVE PULMONARY DISEASE
     Route: 048
     Dates: start: 20180220
  3. NEXIUM [Suspect]
     Active Substance: ESOMEPRAZOLE MAGNESIUM
     Route: 048
     Dates: start: 20181024
  4. PRILOSEC [Suspect]
     Active Substance: OMEPRAZOLE MAGNESIUM
     Dosage: 2 TAB
     Route: 048
  5. TUDORZA PRESSAIR [Suspect]
     Active Substance: ACLIDINIUM BROMIDE
     Indication: CHRONIC OBSTRUCTIVE PULMONARY DISEASE
     Route: 055
  6. BUDESONIDE. [Suspect]
     Active Substance: BUDESONIDE
     Indication: LUNG DISORDER
     Dosage: UNKNOWN DOSE, TWO TIMES A DAY
     Route: 055
  7. DIFLUCAN [Concomitant]
     Active Substance: FLUCONAZOLE
     Indication: CANDIDA INFECTION
  8. OXYGEN. [Concomitant]
     Active Substance: OXYGEN
  9. NEXIUM [Suspect]
     Active Substance: ESOMEPRAZOLE MAGNESIUM
     Route: 048
  10. PRILOSEC [Suspect]
     Active Substance: OMEPRAZOLE MAGNESIUM
     Dosage: 1 TAB
     Route: 048
  11. BROVANA [Concomitant]
     Active Substance: ARFORMOTEROL TARTRATE
     Indication: LUNG DISORDER
     Route: 055

REACTIONS (12)
  - Oesophageal disorder [Unknown]
  - Product residue present [Unknown]
  - Off label use [Unknown]
  - Oesophageal irritation [Unknown]
  - Sinus disorder [Unknown]
  - Parosmia [Unknown]
  - Device issue [Unknown]
  - Intentional product misuse [Unknown]
  - Swelling [Unknown]
  - Hypersensitivity [Unknown]
  - Product taste abnormal [Unknown]
  - Foreign body in respiratory tract [Unknown]
